FAERS Safety Report 4543398-6 (Version None)
Quarter: 2005Q1

REPORT INFORMATION
  Report Type: 
  Country: None (occurrence: None)
  Receive Date: 20050103
  Receipt Date: 20041122
  Transmission Date: 20050727
  Serious: Yes (Life-Threatening, Hospitalization, Disabling)
  Sender: FDA-Public Use
  Company Number: FR-MERCK-0411FRA00082

PATIENT
  Age: 36 Year
  Sex: Male

DRUGS (1)
  1. PROPECIA [Suspect]
     Indication: MALE PATTERN BALDNESS
     Route: 048
     Dates: start: 19980101, end: 20041102

REACTIONS (4)
  - BASILAR ARTERY THROMBOSIS [None]
  - BRAIN STEM ISCHAEMIA [None]
  - COORDINATION ABNORMAL [None]
  - FACIAL PALSY [None]
